FAERS Safety Report 4984856-X (Version None)
Quarter: 2006Q2

REPORT INFORMATION
  Report Type: 
  Country: None (occurrence: None)
  Receive Date: 20060427
  Receipt Date: 20060418
  Transmission Date: 20061013
  Serious: Yes (Other)
  Sender: FDA-Public Use
  Company Number: CA-ROCHE-445026

PATIENT
  Age: 29 Year
  Sex: Male
  Weight: 70 kg

DRUGS (7)
  1. NAPROXEN [Suspect]
     Indication: DRUG USE FOR UNKNOWN INDICATION
     Route: 065
  2. LITHIUM [Suspect]
     Indication: DRUG USE FOR UNKNOWN INDICATION
     Route: 065
  3. CYCLOBENZAPRINE HCL [Concomitant]
     Route: 048
  4. CITALOPRAM [Concomitant]
  5. ATIVAN [Concomitant]
  6. SEROQUEL [Concomitant]
     Route: 048
  7. WELLBUTRIN SR [Concomitant]
     Route: 048

REACTIONS (4)
  - COMA [None]
  - MIOSIS [None]
  - MULTIPLE DRUG OVERDOSE [None]
  - OVERDOSE [None]
